FAERS Safety Report 12736521 (Version 2)
Quarter: 2016Q4

REPORT INFORMATION
  Report Type: Spontaneous
  Country: SE (occurrence: SE)
  Receive Date: 20160912
  Receipt Date: 20161110
  Transmission Date: 20170207
  Serious: Yes (Congenital Anomaly)
  Sender: FDA-Public Use
  Company Number: SE-NOVOPROD-508745

PATIENT
  Sex: Male

DRUGS (6)
  1. TRESIBA [Suspect]
     Active Substance: INSULIN DEGLUDEC
     Dosage: UNK
     Route: 063
     Dates: start: 20150811
  2. CALCICHEW D3 [Concomitant]
     Active Substance: CALCIUM\CHOLECALCIFEROL
     Dosage: 1X1
     Route: 063
     Dates: start: 20150811
  3. PANODIL [Concomitant]
     Active Substance: ACETAMINOPHEN
     Dosage: 2000.00 MG, QD (500 MG X 4)
     Route: 064
     Dates: start: 20141126
  4. PANODIL [Concomitant]
     Active Substance: ACETAMINOPHEN
     Dosage: 2000.00 MG, QD (500 MG X 4)
     Route: 063
     Dates: start: 20150811
  5. TRESIBA [Suspect]
     Active Substance: INSULIN DEGLUDEC
     Indication: TYPE 1 DIABETES MELLITUS
     Dosage: 22 IU, QD
     Route: 064
     Dates: start: 20141126
  6. CALCICHEW D3 [Concomitant]
     Active Substance: CALCIUM\CHOLECALCIFEROL
     Dosage: 1X1
     Route: 064
     Dates: start: 20141126

REACTIONS (3)
  - Exposure during breast feeding [Unknown]
  - Osteogenesis imperfecta [Unknown]
  - Foetal exposure during pregnancy [Recovered/Resolved]

NARRATIVE: CASE EVENT DATE: 20141126
